FAERS Safety Report 7812728-1 (Version None)
Quarter: 2011Q4

REPORT INFORMATION
  Report Type: 
  Country: None (occurrence: None)
  Receive Date: 20111013
  Receipt Date: 20111006
  Transmission Date: 20120403
  Serious: Yes (Hospitalization)
  Sender: FDA-Public Use
  Company Number: JP-ACTELION-A-CH2011-55256

PATIENT
  Sex: Male
  Weight: 59 kg

DRUGS (8)
  1. TRACLEER [Suspect]
     Dosage: 62.5 MG, BID
     Route: 048
     Dates: start: 20110629, end: 20110712
  2. TRACLEER [Suspect]
     Indication: PULMONARY ARTERIAL HYPERTENSION
     Dosage: 62.5 MG, TID
     Route: 048
     Dates: start: 20110713, end: 20110726
  3. ASPIRIN [Concomitant]
  4. CARBOCISTEINE [Concomitant]
  5. TRACLEER [Suspect]
     Dosage: 62.5 MG, QD
     Route: 048
     Dates: start: 20110615, end: 20110628
  6. TRACLEER [Suspect]
     Dosage: 62.5 MG, BID
     Route: 048
     Dates: start: 20110802, end: 20110803
  7. TRACLEER [Suspect]
     Dosage: 125 MG, BID
     Route: 048
     Dates: start: 20110727, end: 20110801
  8. ETIZOLAM [Concomitant]

REACTIONS (8)
  - ASPARTATE AMINOTRANSFERASE INCREASED [None]
  - ALANINE AMINOTRANSFERASE INCREASED [None]
  - LIVER DISORDER [None]
  - PNEUMONIA [None]
  - COUGH [None]
  - PYREXIA [None]
  - PRODUCTIVE COUGH [None]
  - SUFFOCATION FEELING [None]
